FAERS Safety Report 6254701-3 (Version None)
Quarter: 2009Q3

REPORT INFORMATION
  Report Type: 
  Country: None (occurrence: None)
  Receive Date: 20090702
  Receipt Date: 20090622
  Transmission Date: 20100115
  Serious: Yes (Hospitalization)
  Sender: FDA-Public Use
  Company Number: JP-PFIZER INC-2009195676

PATIENT
  Age: 72 Year

DRUGS (11)
  1. EXEMESTANE [Suspect]
     Indication: BREAST CANCER
     Dosage: UNK
     Dates: start: 20071019, end: 20090407
  2. BERIZYM [Concomitant]
     Indication: PANCREATITIS CHRONIC
     Dosage: UNK
     Route: 048
  3. FOIPAN [Concomitant]
     Indication: PANCREATITIS CHRONIC
     Dosage: UNK
     Route: 048
  4. AMLODIPINE [Concomitant]
     Indication: HYPERTENSION
     Dosage: UNK
     Route: 048
  5. LOXONIN [Concomitant]
     Indication: BACK PAIN
     Dosage: UNK
     Route: 048
  6. GASTER OD [Concomitant]
     Dosage: UNK
     Route: 048
  7. KOLANTYL [Concomitant]
     Indication: PANCREATITIS CHRONIC
     Dosage: UNK
     Route: 048
  8. ENSURE [Concomitant]
     Dosage: UNK
     Route: 048
  9. MILTAX [Concomitant]
     Indication: BACK PAIN
     Dosage: UNK
  10. SANCOBA [Concomitant]
     Indication: CATARACT
     Dosage: UNK
  11. PURSENNID [Concomitant]
     Dosage: UNK
     Route: 048

REACTIONS (1)
  - CELLULITIS [None]
